FAERS Safety Report 8041932 (Version 4)
Quarter: 2012Q4

REPORT INFORMATION
  Report Type: 
  Country: US (occurrence: US)
  Receive Date: 20110718
  Receipt Date: 20121112
  Transmission Date: 20130627
  Serious: Yes (Hospitalization)
  Sender: FDA-Public Use
  Company Number: US-BAYER-2011-061807

PATIENT
  Age: 17 Year
  Sex: Female
  Weight: 62.59 kg

DRUGS (7)
  1. YAZ [Suspect]
     Indication: BIRTH CONTROL
     Dosage: UNK
     Dates: start: 200804, end: 20090209
  2. YAZ [Suspect]
     Indication: ACNE
  3. YAZ [Suspect]
     Indication: DYSMENORRHEA
  4. YAZ [Suspect]
     Indication: MENSTRUAL CYCLE MANAGEMENT
  5. DARVOCET [Concomitant]
     Route: 048
  6. EXCEDRIN MIGRAINE [Concomitant]
     Indication: HEADACHE
     Dosage: UNK
     Route: 048
     Dates: start: 20090208
  7. IBUPROFEN [Concomitant]
     Dosage: UNK UNK, PRN

REACTIONS (5)
  - Cerebrovascular accident [Recovered/Resolved]
  - Pain [None]
  - Emotional distress [None]
  - Anxiety [None]
  - General physical health deterioration [None]
